APPROVED DRUG PRODUCT: EVEROLIMUS
Active Ingredient: EVEROLIMUS
Strength: 5MG
Dosage Form/Route: TABLET, FOR SUSPENSION;ORAL
Application: A210130 | Product #003
Applicant: MYLAN PHARMACEUTICALS INC
Approved: Apr 19, 2019 | RLD: No | RS: No | Type: DISCN